FAERS Safety Report 25003720 (Version 1)
Quarter: 2025Q1

REPORT INFORMATION
  Report Type: Spontaneous
  Country: US (occurrence: None)
  Receive Date: 20250221
  Receipt Date: 20250221
  Transmission Date: 20250408
  Serious: Yes (Other)
  Sender: FDA-CTU
  Company Number: None

PATIENT
  Age: 45 Year
  Sex: Male
  Weight: 165.6 kg

DRUGS (3)
  1. QSYMIA [Suspect]
     Active Substance: PHENTERMINE HYDROCHLORIDE\TOPIRAMATE
     Indication: Weight decreased
     Route: 048
     Dates: start: 20250201, end: 20250218
  2. LISINOPRIL [Concomitant]
     Active Substance: LISINOPRIL
  3. advorstatin [Concomitant]

REACTIONS (7)
  - Abdominal pain upper [None]
  - Constipation [None]
  - Diarrhoea [None]
  - Gastrooesophageal reflux disease [None]
  - Hypotension [None]
  - Abdominal distension [None]
  - Therapy cessation [None]

NARRATIVE: CASE EVENT DATE: 20250218
